FAERS Safety Report 20462366 (Version 3)
Quarter: 2022Q2

REPORT INFORMATION
  Report Type: Other
  Country: TR (occurrence: None)
  Receive Date: 20220211
  Receipt Date: 20220418
  Transmission Date: 20220721
  Serious: Yes (Hospitalization, Other)
  Sender: FDA-Public Use
  Company Number: TR-ROCHE-3016990

PATIENT
  Age: 65 Year
  Sex: Male
  Weight: 65 kg

DRUGS (2)
  1. GLOFITAMAB [Suspect]
     Active Substance: GLOFITAMAB
     Indication: Diffuse large B-cell lymphoma
     Dosage: 8TH DAY: GLOFITAMAB 2.5 MG,?15TH DAY: GLOFITAMAB 10 MG.?EACH TREATMENT CYCLE LASTS FOR 21 DAYS.?FROM
     Route: 042
     Dates: start: 20220127, end: 20220210
  2. OBINUTUZUMAB [Suspect]
     Active Substance: OBINUTUZUMAB
     Indication: Diffuse large B-cell lymphoma
     Dosage: 1ST DAY: OBINUTUZUMAB (GAZYVA) AS PRE-TREATMENT, 1000 MG FIXED DOSE (ADMINISTERED ONCE)
     Route: 042
     Dates: start: 20220120, end: 20220120

REACTIONS (5)
  - Atrial flutter [Recovered/Resolved]
  - Thrombocytopenia [Not Recovered/Not Resolved]
  - Cytokine release syndrome [Recovered/Resolved]
  - Neutropenia [Not Recovered/Not Resolved]
  - Anaemia [Recovered/Resolved]

NARRATIVE: CASE EVENT DATE: 20220127
